FAERS Safety Report 18335722 (Version 1)
Quarter: 2020Q4

REPORT INFORMATION
  Report Type: Spontaneous
  Country: US (occurrence: US)
  Receive Date: 20201001
  Receipt Date: 20201001
  Transmission Date: 20210113
  Serious: Yes (Other)
  Sender: FDA-Public Use
  Company Number: US-SA-2020SA269119

PATIENT

DRUGS (1)
  1. XYZAL [Suspect]
     Active Substance: LEVOCETIRIZINE DIHYDROCHLORIDE
     Dosage: UNK
     Route: 065

REACTIONS (7)
  - Anxiety [Unknown]
  - Feeling abnormal [Unknown]
  - Nausea [Unknown]
  - Palpitations [Unknown]
  - Hallucination [Unknown]
  - Musculoskeletal chest pain [Unknown]
  - Dizziness [Unknown]
